FAERS Safety Report 5912662-8 (Version None)
Quarter: 2008Q4

REPORT INFORMATION
  Report Type: 
  Country: None (occurrence: None)
  Receive Date: 20081008
  Receipt Date: 20081002
  Transmission Date: 20090506
  Serious: No
  Sender: FDA-Public Use
  Company Number: US-B.I. PHARMACEUTICALS,INC./RIDGEFIELD-2008-BP-12519BP

PATIENT
  Sex: Male

DRUGS (3)
  1. SPIRIVA [Suspect]
     Indication: ASTHMA
     Dosage: 18MCG
     Route: 055
     Dates: start: 20070101
  2. ADVAIR DISKUS 100/50 [Suspect]
     Indication: ASTHMA
  3. XOPENEX [Concomitant]
     Indication: ASTHMA

REACTIONS (1)
  - GLOSSODYNIA [None]
